FAERS Safety Report 6380429-5 (Version None)
Quarter: 2009Q3

REPORT INFORMATION
  Report Type: 
  Country: None (occurrence: None)
  Receive Date: 20090929
  Receipt Date: 20090916
  Transmission Date: 20100115
  Serious: Yes (Other)
  Sender: FDA-Public Use
  Company Number: PHHY2009BR19598

PATIENT
  Sex: Female
  Weight: 70 kg

DRUGS (7)
  1. COMBIPATCH [Suspect]
     Indication: MENOPAUSAL SYMPTOMS
     Dosage: 50/140 MCG, TWICE A WEEK
     Route: 062
     Dates: start: 20070401, end: 20090301
  2. SYSTEN CONTI [Suspect]
     Dosage: UNK
     Dates: start: 20080101
  3. PLURAIR [Concomitant]
     Indication: RHINITIS ALLERGIC
     Dosage: UNK
     Dates: start: 20080901
  4. FEXOFENADINE HYDROCHLORIDE [Concomitant]
     Indication: RHINITIS ALLERGIC
     Dosage: UNK
     Dates: start: 20080901
  5. FLUOXETINE [Concomitant]
     Indication: DEPRESSION
     Dosage: 1 TAB/DAY IN THE MORNING
     Route: 048
     Dates: start: 20090101
  6. SIMVASTATIN [Concomitant]
     Indication: BLOOD CHOLESTEROL
     Dosage: 1 TAB/DAY
     Route: 048
     Dates: start: 20090101
  7. RIVOTRIL [Concomitant]
     Indication: DEPRESSION
     Dosage: 1 TABLET DAILY AT THE NIGHT
     Route: 048

REACTIONS (3)
  - BLOOD CHOLESTEROL INCREASED [None]
  - BREAST MASS [None]
  - PRODUCT SUBSTITUTION ISSUE [None]
